FAERS Safety Report 11138018 (Version 1)
Quarter: 2015Q2

REPORT INFORMATION
  Report Type: Report from Study
  Country: US (occurrence: US)
  Receive Date: 20150526
  Receipt Date: 20150526
  Transmission Date: 20150821
  Serious: No
  Sender: FDA-Public Use
  Company Number: US-MALLINCKRODT-T201500064

PATIENT
  Age: 36 Year
  Sex: Female

DRUGS (1)
  1. H.P. ACTHAR [Suspect]
     Active Substance: CORTICOTROPIN
     Indication: MULTIPLE SCLEROSIS
     Dosage: 200 U PER DAY THEN 100 U PER DAY
     Route: 065
     Dates: start: 20140805, end: 20140815

REACTIONS (2)
  - Restlessness [Unknown]
  - Nervousness [Unknown]
